FAERS Safety Report 11338752 (Version 1)
Quarter: 2015Q3

REPORT INFORMATION
  Report Type: Spontaneous
  Country: US (occurrence: US)
  Receive Date: 20150803
  Receipt Date: 20150803
  Transmission Date: 20151125
  Serious: No
  Sender: FDA-Public Use
  Company Number: US-ELI_LILLY_AND_COMPANY-US200807000201

PATIENT
  Age: 50 Year
  Sex: Male

DRUGS (3)
  1. STRATTERA [Suspect]
     Active Substance: ATOMOXETINE HYDROCHLORIDE
     Dosage: 25 MG, EACH MORNING
     Dates: end: 2008
  2. STRATTERA [Suspect]
     Active Substance: ATOMOXETINE HYDROCHLORIDE
     Dosage: 60 MG, UNK
     Dates: start: 20080522, end: 20080624
  3. STRATTERA [Suspect]
     Active Substance: ATOMOXETINE HYDROCHLORIDE
     Dosage: 60 MG, UNK
     Dates: start: 20080626

REACTIONS (4)
  - Groin pain [Not Recovered/Not Resolved]
  - Somnolence [Unknown]
  - Skin discolouration [Unknown]
  - Testicular retraction [Unknown]

NARRATIVE: CASE EVENT DATE: 200805
